FAERS Safety Report 5563254-4 (Version None)
Quarter: 2007Q4

REPORT INFORMATION
  Report Type: 
  Country: None (occurrence: None)
  Receive Date: 20071211
  Receipt Date: 20071126
  Transmission Date: 20080405
  Serious: Yes (Hospitalization, Other)
  Sender: FDA-Public Use
  Company Number: 2007001755

PATIENT
  Age: 76 Year
  Sex: Female

DRUGS (1)
  1. MACUGEN [Suspect]
     Indication: NEOVASCULARISATION
     Dosage: INTRA-VITREAL
     Dates: start: 20070510

REACTIONS (3)
  - BLINDNESS UNILATERAL [None]
  - HYPERSENSITIVITY [None]
  - RETINAL HAEMORRHAGE [None]
